FAERS Safety Report 8058863-7 (Version None)
Quarter: 2012Q1

REPORT INFORMATION
  Report Type: 
  Country: None (occurrence: None)
  Receive Date: 20120120
  Receipt Date: 20111202
  Transmission Date: 20120608
  Serious: Yes (Other)
  Sender: FDA-Public Use
  Company Number: US-BRISTOL-MYERS SQUIBB COMPANY-16217242

PATIENT
  Age: 59 Year
  Sex: Female
  Weight: 74 kg

DRUGS (1)
  1. YERVOY [Suspect]
     Dosage: THERAPY DATES:24-JUN-2011, 15-JUL-2011, 04-AUG-2011, AND 26-AUG-2011
     Dates: start: 20110624

REACTIONS (1)
  - NEOPLASM MALIGNANT [None]
